FAERS Safety Report 17520037 (Version 1)
Quarter: 2020Q1

REPORT INFORMATION
  Report Type: Spontaneous
  Country: US (occurrence: US)
  Receive Date: 20200226
  Receipt Date: 20200226
  Transmission Date: 20200409
  Serious: Yes (Death, Hospitalization)
  Sender: FDA-Public Use
  Company Number: None

PATIENT
  Age: 7 Year
  Sex: Female
  Weight: 23 kg

DRUGS (3)
  1. BLEOMYCIN [Suspect]
     Active Substance: BLEOMYCIN SULFATE
     Dates: end: 20200206
  2. ETOPOSIDE (VP-16) [Suspect]
     Active Substance: ETOPOSIDE
     Dates: end: 20200214
  3. CARBOPLATIN. [Suspect]
     Active Substance: CARBOPLATIN
     Dates: end: 20200206

REACTIONS (11)
  - Tumour lysis syndrome [None]
  - Fungaemia [None]
  - Cytomegalovirus viraemia [None]
  - Pulmonary haemorrhage [None]
  - Renal failure [None]
  - Pancytopenia [None]
  - Septic shock [None]
  - Skin disorder [None]
  - Urinary tract infection fungal [None]
  - Acute respiratory distress syndrome [None]
  - Respiratory distress [None]

NARRATIVE: CASE EVENT DATE: 20200223
